FAERS Safety Report 7298306-4 (Version None)
Quarter: 2011Q1

REPORT INFORMATION
  Report Type: 
  Country: None (occurrence: None)
  Receive Date: 20110217
  Receipt Date: 20100324
  Transmission Date: 20110831
  Serious: No
  Sender: FDA-Public Use
  Company Number: US-PFIZER INC-2010018466

PATIENT
  Sex: Female

DRUGS (4)
  1. XALATAN [Suspect]
     Dosage: 2 GTT, 1X/DAY
  2. TUMS [Concomitant]
     Dosage: UNK
  3. NASACORT [Concomitant]
     Indication: SINUS DISORDER
     Dosage: UNK
  4. PRAVASTATIN [Concomitant]
     Indication: BLOOD CHOLESTEROL INCREASED
     Dosage: UNK

REACTIONS (2)
  - INTRAOCULAR PRESSURE INCREASED [None]
  - EYELASH DISCOLOURATION [None]
